FAERS Safety Report 8312430-6 (Version None)
Quarter: 2012Q2

REPORT INFORMATION
  Report Type: 
  Country: None (occurrence: None)
  Receive Date: 20120425
  Receipt Date: 20120415
  Transmission Date: 20120825
  Serious: Yes (Disabling)
  Sender: FDA-Public Use
  Company Number: IL-ALLERGAN-1205385US

PATIENT
  Age: 72 Year
  Sex: Male
  Weight: 88 kg

DRUGS (4)
  1. EFRIN [Concomitant]
     Indication: MYDRIASIS
     Dosage: 1 GTT, PRN
     Route: 047
     Dates: start: 20110918
  2. MIDRAMID [Concomitant]
     Indication: MYDRIASIS
     Dosage: 1 GTT, PRN
     Route: 047
     Dates: start: 20110918
  3. BRIMONIDINE 0.4MG INS (9741X) [Suspect]
     Indication: MEDICAL OBSERVATION
     Dosage: UNK
  4. LOCALIN [Concomitant]
     Indication: LOCAL ANAESTHESIA
     Dosage: 1 GTT, PRN
     Route: 047
     Dates: start: 20110918

REACTIONS (1)
  - OPTIC ATROPHY [None]
